FAERS Safety Report 8505775-8 (Version None)
Quarter: 2012Q3

REPORT INFORMATION
  Report Type: 
  Country: None (occurrence: None)
  Receive Date: 20120712
  Receipt Date: 20120703
  Transmission Date: 20120928
  Serious: Yes (Hospitalization)
  Sender: FDA-Public Use
  Company Number: BR-ASTRAZENECA-2012SE40747

PATIENT
  Age: 58 Year
  Sex: Female
  Weight: 60 kg

DRUGS (8)
  1. ATACAND [Suspect]
     Indication: HYPERTENSION
     Route: 048
     Dates: start: 20100101, end: 20120101
  2. ATACAND HCT [Suspect]
     Indication: HYPERTENSION
     Dosage: 16/12.5 MG ONCE DAILY
     Route: 048
     Dates: start: 20120101
  3. ASPIRIN [Concomitant]
  4. PURAN [Concomitant]
     Indication: HYPOTHYROIDISM
  5. ALPRAZOLAM [Concomitant]
     Indication: SEDATIVE THERAPY
  6. DECADRON [Concomitant]
  7. PHENYTOIN [Concomitant]
  8. PAROXETINE [Concomitant]
     Indication: SEDATIVE THERAPY
     Route: 048

REACTIONS (4)
  - HAEMORRHAGIC STROKE [None]
  - BLOOD PRESSURE INCREASED [None]
  - BACK PAIN [None]
  - BLOOD CHOLESTEROL INCREASED [None]
